FAERS Safety Report 8073436-8 (Version None)
Quarter: 2012Q1

REPORT INFORMATION
  Report Type: 
  Country: None (occurrence: None)
  Receive Date: 20120126
  Receipt Date: 20120119
  Transmission Date: 20120608
  Serious: Yes (Other)
  Sender: FDA-Public Use
  Company Number: VE-ELI_LILLY_AND_COMPANY-VE201111007477

PATIENT
  Age: 57 Year
  Sex: Male

DRUGS (6)
  1. VITAMINS NOS [Concomitant]
     Dosage: UNK, UNKNOWN
     Route: 065
  2. LOVAZA [Concomitant]
     Dosage: UNK, UNKNOWN
     Route: 065
  3. BYETTA [Suspect]
     Dosage: UNK, UNKNOWN
     Route: 065
     Dates: start: 20111102
  4. GLUCERNA [Concomitant]
     Indication: SUPPLEMENTATION THERAPY
     Dosage: UNK, UNKNOWN
     Route: 065
  5. ATACAND [Concomitant]
     Dosage: 16 MG, UNKNOWN
     Route: 065
  6. FOLIC ACID [Concomitant]
     Dosage: UNK, UNKNOWN
     Route: 065

REACTIONS (4)
  - DISCOMFORT [None]
  - HEADACHE [None]
  - ASTHENIA [None]
  - ABDOMINAL ABSCESS [None]
